FAERS Safety Report 4618160-6 (Version None)
Quarter: 2005Q1

REPORT INFORMATION
  Report Type: 
  Country: None (occurrence: None)
  Receive Date: 20050322
  Receipt Date: 20050308
  Transmission Date: 20050727
  Serious: No
  Sender: FDA-Public Use
  Company Number: 2005UW03729

PATIENT
  Age: 54 Year
  Sex: Female
  Weight: 68.038 kg

DRUGS (5)
  1. CRESTOR [Suspect]
     Indication: HYPERCHOLESTEROLAEMIA
     Dosage: 10 MG PO
     Route: 048
     Dates: start: 20040101, end: 20041101
  2. TRICOR [Concomitant]
  3. ACCOLATE [Concomitant]
  4. BENICAR [Concomitant]
  5. MAXZIDE [Concomitant]

REACTIONS (5)
  - GALLBLADDER PERFORATION [None]
  - HEPATOCELLULAR DAMAGE [None]
  - IATROGENIC INJURY [None]
  - LIVER FUNCTION TEST ABNORMAL [None]
  - PROCEDURAL COMPLICATION [None]
